FAERS Safety Report 4325570-3 (Version None)
Quarter: 2004Q1

REPORT INFORMATION
  Report Type: 
  Country: None (occurrence: None)
  Receive Date: 20040324
  Receipt Date: 20040304
  Transmission Date: 20041129
  Serious: Yes (Hospitalization)
  Sender: FDA-Public Use
  Company Number: USA030538102

PATIENT
  Age: 76 Year
  Sex: Female
  Weight: 45 kg

DRUGS (14)
  1. FORTEO [Suspect]
     Indication: OSTEOPOROSIS
     Dosage: 20 UG/1 DAY
     Dates: start: 20030601
  2. CALCIUM [Concomitant]
  3. FOLIC ACID [Concomitant]
  4. MEDROL [Concomitant]
  5. MIACALCIN [Concomitant]
  6. TOPROL-XL [Concomitant]
  7. PLAQUENIL (HYDROXYCVHLOROQUINE SULFATE) [Concomitant]
  8. ACIPHEX (RABEPRASOLE SODIUM) [Concomitant]
  9. IMURAN [Concomitant]
  10. LIBRAX [Concomitant]
  11. ARAFATE (SUCRALFATE) [Concomitant]
  12. ASPIRIN [Concomitant]
  13. VIACTIV [Concomitant]
  14. ULTRAVATE (ULOBETASOL PROPIONATE) [Concomitant]

REACTIONS (18)
  - ABDOMINAL PAIN [None]
  - ANXIETY [None]
  - BACK PAIN [None]
  - CONDITION AGGRAVATED [None]
  - CONSTIPATION [None]
  - DIARRHOEA [None]
  - DIVERTICULITIS [None]
  - FALL [None]
  - FEELING ABNORMAL [None]
  - FLATULENCE [None]
  - HEAD INJURY [None]
  - INJECTION SITE HAEMORRHAGE [None]
  - MUSCLE CRAMP [None]
  - PAIN [None]
  - PHARMACEUTICAL PRODUCT COMPLAINT [None]
  - SPINAL FRACTURE [None]
  - TREMOR [None]
  - VOMITING [None]
